FAERS Safety Report 17432435 (Version 3)
Quarter: 2020Q1

REPORT INFORMATION
  Report Type: Report from Study
  Country: US (occurrence: US)
  Receive Date: 20200218
  Receipt Date: 20200305
  Transmission Date: 20200409
  Serious: Yes (Hospitalization)
  Sender: FDA-Public Use
  Company Number: US-ACTELION-A-NJ2020-201808

PATIENT
  Age: 65 Year
  Sex: Female
  Weight: 63.95 kg

DRUGS (6)
  1. UPTRAVI [Suspect]
     Active Substance: SELEXIPAG
     Indication: PULMONARY HYPERTENSION
     Dosage: 1600 MCG, BID
     Route: 048
     Dates: end: 20200127
  2. ADCIRCA [Concomitant]
     Active Substance: TADALAFIL
  3. VELETRI [Suspect]
     Active Substance: EPOPROSTENOL
     Dosage: 16 NG/KG, PER MIN
     Route: 042
  4. VELETRI [Suspect]
     Active Substance: EPOPROSTENOL
     Indication: PULMONARY HYPERTENSION
     Dosage: 12 NG/KG, PER MIN
     Route: 042
     Dates: start: 20200129
  5. VELETRI [Suspect]
     Active Substance: EPOPROSTENOL
     Dosage: 17 NG/KG, PER MIN
     Route: 042
  6. LETAIRIS [Concomitant]
     Active Substance: AMBRISENTAN

REACTIONS (10)
  - Dyspnoea [Unknown]
  - Heart sounds abnormal [Unknown]
  - Cyanosis [Unknown]
  - Thrombosis [Unknown]
  - Therapy change [Unknown]
  - Dyspnoea exertional [Unknown]
  - Peripheral coldness [Unknown]
  - Memory impairment [Unknown]
  - Feeling cold [Unknown]
  - Oedema peripheral [Unknown]

NARRATIVE: CASE EVENT DATE: 202001
